FAERS Safety Report 9413026 (Version 2)
Quarter: 2014Q1

REPORT INFORMATION
  Report Type: Spontaneous
  Country: US (occurrence: US)
  Receive Date: 20130722
  Receipt Date: 20140318
  Transmission Date: 20141002
  Serious: Yes (Death, Hospitalization)
  Sender: FDA-Public Use
  Company Number: US-GLAXOSMITHKLINE-A1034238A

PATIENT
  Age: 62 Year
  Sex: Male

DRUGS (2)
  1. AVANDARYL [Suspect]
     Indication: TYPE 2 DIABETES MELLITUS
     Route: 048
     Dates: start: 200711, end: 200801
  2. AVANDAMET [Suspect]
     Indication: DIABETES MELLITUS
     Dates: start: 200804, end: 200907

REACTIONS (2)
  - Cardiac arrest [Fatal]
  - Myocardial infarction [Unknown]
